FAERS Safety Report 8833705 (Version 1)
Quarter: 2012Q4

REPORT INFORMATION
  Report Type: 
  Country: US (occurrence: US)
  Receive Date: 20121010
  Receipt Date: 20121010
  Transmission Date: 20130627
  Serious: No
  Sender: FDA-Public Use
  Company Number: US-VERTEX PHARMACEUTICAL INC.-2012-021867

PATIENT
  Age: 56 Year
  Sex: Male
  Weight: 79.37 kg

DRUGS (4)
  1. INCIVEK [Suspect]
     Indication: HEPATITIS C
     Dosage: 750 mg, tid
     Route: 048
     Dates: start: 20120914
  2. RIBASPHERE [Suspect]
     Indication: HEPATITIS C
     Dosage: 400 mg, tid
     Dates: start: 20120914
  3. PEGASYS [Suspect]
     Indication: HEPATITIS C
     Dosage: 180 ?g, UNK
     Route: 058
     Dates: start: 20120914
  4. ZOFRAN                             /00955301/ [Concomitant]
     Dosage: UNK
     Dates: start: 20120923

REACTIONS (9)
  - Blood potassium decreased [Unknown]
  - Dehydration [Unknown]
  - Drug dose omission [Recovered/Resolved]
  - Epistaxis [Recovered/Resolved]
  - Pain [Recovered/Resolved]
  - Weight decreased [Not Recovered/Not Resolved]
  - Nausea [Recovered/Resolved]
  - Vomiting [Recovered/Resolved]
  - Anorectal discomfort [Not Recovered/Not Resolved]
